FAERS Safety Report 7277843-2 (Version None)
Quarter: 2011Q1

REPORT INFORMATION
  Report Type: 
  Country: None (occurrence: None)
  Receive Date: 20110207
  Receipt Date: 20110128
  Transmission Date: 20110831
  Serious: Yes (Hospitalization, Other)
  Sender: FDA-Public Use
  Company Number: FR-JNJFOC-20110200461

PATIENT
  Sex: Female

DRUGS (8)
  1. OROCAL D3 [Concomitant]
     Route: 065
  2. CRESTOR [Concomitant]
     Route: 065
  3. CITALOPRAM HYDROBROMIDE [Suspect]
     Indication: PRODUCT USED FOR UNKNOWN INDICATION
     Route: 048
  4. REMINYL LP [Suspect]
     Indication: DEMENTIA ALZHEIMER'S TYPE
     Route: 048
  5. PRETERAX [Concomitant]
     Route: 065
  6. OFLOCET [Concomitant]
     Route: 065
  7. NEBIVOLOL HCL [Concomitant]
     Route: 065
  8. DAFALGAN [Concomitant]
     Route: 065

REACTIONS (6)
  - HYPOALBUMINAEMIA [None]
  - GENERAL PHYSICAL CONDITION ABNORMAL [None]
  - MALNUTRITION [None]
  - DECREASED APPETITE [None]
  - WEIGHT DECREASED [None]
  - FOLATE DEFICIENCY [None]
